FAERS Safety Report 10187403 (Version 1)
Quarter: 2014Q2

REPORT INFORMATION
  Report Type: Spontaneous
  Country: US (occurrence: None)
  Receive Date: 20140520
  Receipt Date: 20140520
  Transmission Date: 20141212
  Serious: Yes (Hospitalization, Other)
  Sender: FDA-Public Use
  Company Number: 2014SA040589

PATIENT
  Age: 87 Year
  Sex: Male

DRUGS (3)
  1. PLAVIX [Suspect]
     Indication: PRODUCT USED FOR UNKNOWN INDICATION
     Dates: start: 1999, end: 20140322
  2. ASPIRIN [Suspect]
     Indication: PRODUCT USED FOR UNKNOWN INDICATION
  3. INDOCIN [Suspect]
     Indication: ARTHRALGIA
     Dates: start: 1985, end: 2014

REACTIONS (3)
  - Atrial fibrillation [None]
  - Renal failure chronic [None]
  - Diabetes mellitus [None]
